FAERS Safety Report 25373776 (Version 1)
Quarter: 2025Q2

REPORT INFORMATION
  Report Type: Spontaneous
  Country: US (occurrence: None)
  Receive Date: 20250528
  Receipt Date: 20250528
  Transmission Date: 20250716
  Serious: Yes (Death)
  Sender: FDA-CTU
  Company Number: None

PATIENT
  Sex: Male

DRUGS (10)
  1. LENALIDOMIDE [Suspect]
     Active Substance: LENALIDOMIDE
     Indication: Anaplastic large cell lymphoma T- and null-cell types
     Dosage: FREQUENCY : MONTHLY;?
     Route: 048
     Dates: start: 20250506
  2. ACYCLOVIR [Concomitant]
     Active Substance: ACYCLOVIR
  3. ALBUTEROL [Concomitant]
     Active Substance: ALBUTEROL
  4. AMIODARONE [Concomitant]
     Active Substance: AMIODARONE
  5. CHOLECALCIFEROL [Concomitant]
     Active Substance: CHOLECALCIFEROL
  6. LOPERAMIDE [Concomitant]
     Active Substance: LOPERAMIDE
  7. MIDODRINE [Concomitant]
     Active Substance: MIDODRINE
  8. OXYCODONE [Concomitant]
     Active Substance: OXYCODONE
  9. PRED FORTE [Concomitant]
     Active Substance: PREDNISOLONE ACETATE
  10. PROCHLORPER [Concomitant]

REACTIONS (1)
  - Death [None]
